FAERS Safety Report 7831150-5 (Version None)
Quarter: 2011Q4

REPORT INFORMATION
  Report Type: 
  Country: None (occurrence: None)
  Receive Date: 20111021
  Receipt Date: 20111016
  Transmission Date: 20120403
  Serious: Yes (Congenital Anomaly)
  Sender: FDA-Public Use
  Company Number: UG-ABBOTT-11P-165-0865031-00

PATIENT
  Sex: Female
  Weight: 1.9 kg

DRUGS (2)
  1. LOPINAVIR/RITONAVIR [Suspect]
     Indication: MATERNAL EXPOSURE DURING PREGNANCY
     Route: 064
  2. LAMIVUDINE + ZIDOVUDINE [Concomitant]
     Indication: MATERNAL EXPOSURE DURING PREGNANCY
     Route: 064

REACTIONS (3)
  - CONGENITAL EYELID MALFORMATION [None]
  - DYSMORPHISM [None]
  - LOW SET EARS [None]
